FAERS Safety Report 7747037-2 (Version None)
Quarter: 2011Q3

REPORT INFORMATION
  Report Type: 
  Country: None (occurrence: None)
  Receive Date: 20110913
  Receipt Date: 20110909
  Transmission Date: 20111222
  Serious: Yes (Other)
  Sender: FDA-Public Use
  Company Number: PHHY2011AU80624

PATIENT
  Sex: Male

DRUGS (1)
  1. VOLTAREN [Suspect]
     Dosage: 50 MG, UNK
     Route: 048
     Dates: start: 20110908

REACTIONS (2)
  - URINARY INCONTINENCE [None]
  - TINNITUS [None]
